FAERS Safety Report 6280725-6 (Version None)
Quarter: 2009Q3

REPORT INFORMATION
  Report Type: 
  Country: None (occurrence: None)
  Receive Date: 20090724
  Receipt Date: 20081212
  Transmission Date: 20100115
  Serious: Yes (Other)
  Sender: FDA-Public Use
  Company Number: A0760186A

PATIENT
  Age: 64 Year
  Sex: Female

DRUGS (6)
  1. AVANDIA [Suspect]
     Dosage: 1TAB TWICE PER DAY
     Route: 048
     Dates: start: 20060101
  2. METFORMIN HCL [Concomitant]
  3. PRANDIN [Concomitant]
  4. LIPITOR [Concomitant]
  5. NORVASC [Concomitant]
  6. ACCUPRIL [Concomitant]

REACTIONS (1)
  - ANAEMIA [None]
